FAERS Safety Report 20360123 (Version 4)
Quarter: 2022Q1

REPORT INFORMATION
  Report Type: Report from Study
  Country: DK (occurrence: DK)
  Receive Date: 20220121
  Receipt Date: 20220323
  Transmission Date: 20220423
  Serious: Yes (Hospitalization, Other)
  Sender: FDA-Public Use
  Company Number: DK-JNJFOC-20220129671

PATIENT
  Age: 15 Year
  Sex: Female
  Weight: 42.6 kg

DRUGS (4)
  1. REMICADE [Suspect]
     Active Substance: INFLIXIMAB
     Indication: Crohn^s disease
     Route: 042
     Dates: start: 20111011, end: 20111212
  2. REMICADE [Suspect]
     Active Substance: INFLIXIMAB
     Indication: Inflammatory bowel disease
  3. AZATHIOPRINE [Concomitant]
     Active Substance: AZATHIOPRINE
  4. MESALAMINE [Concomitant]
     Active Substance: MESALAMINE

REACTIONS (2)
  - Juvenile idiopathic arthritis [Recovered/Resolved with Sequelae]
  - Bone erosion [Recovered/Resolved with Sequelae]

NARRATIVE: CASE EVENT DATE: 20160831
